FAERS Safety Report 18140183 (Version 2)
Quarter: 2020Q4

REPORT INFORMATION
  Report Type: Spontaneous
  Country: GB (occurrence: GB)
  Receive Date: 20200812
  Receipt Date: 20201027
  Transmission Date: 20210113
  Serious: Yes (Hospitalization, Other)
  Sender: FDA-Public Use
  Company Number: GB-BAYER-2020-164939

PATIENT
  Age: 49 Year
  Sex: Female

DRUGS (1)
  1. BETAFERON [Suspect]
     Active Substance: INTERFERON BETA-1B
     Indication: MULTIPLE SCLEROSIS
     Dosage: 250 ?G, UNK
     Dates: start: 2009

REACTIONS (20)
  - Hepatic cirrhosis [Recovered/Resolved]
  - Vitamin D deficiency [Recovered/Resolved]
  - Abdominal symptom [Recovered/Resolved]
  - Feeling of body temperature change [Recovered/Resolved]
  - Hyperhidrosis [Recovered/Resolved]
  - Agoraphobia [Recovered/Resolved]
  - Arthritis [Recovered/Resolved]
  - Obesity [None]
  - Dyspnoea [Recovered/Resolved]
  - Malaise [Recovered/Resolved]
  - Depression [Recovered/Resolved]
  - Non-alcoholic steatohepatitis [Recovered/Resolved]
  - Eczema [Recovered/Resolved]
  - Dizziness [Recovered/Resolved]
  - Asthenia [Recovered/Resolved]
  - Anaemia [Recovered/Resolved]
  - Influenza like illness [Recovered/Resolved]
  - Vertigo [Recovered/Resolved]
  - Pneumonia [Recovered/Resolved]
  - Phobia [Recovered/Resolved]
